FAERS Safety Report 4504809-5 (Version None)
Quarter: 2004Q3

REPORT INFORMATION
  Report Type: 
  Country: None (occurrence: None)
  Receive Date: 20040927
  Receipt Date: 20040707
  Transmission Date: 20050211
  Serious: No
  Sender: FDA-Public Use
  Company Number: USA040772044

PATIENT
  Age: 64 Year
  Sex: Male

DRUGS (2)
  1. STRATTERA [Suspect]
     Indication: ATTENTION DEFICIT/HYPERACTIVITY DISORDER
     Dosage: 40 MG DAY
     Dates: start: 20040627
  2. VITAMIN NOS [Concomitant]

REACTIONS (4)
  - BLOOD PRESSURE DECREASED [None]
  - HEART RATE DECREASED [None]
  - RASH [None]
  - URINE OUTPUT DECREASED [None]
